FAERS Safety Report 9625621 (Version 1)
Quarter: 2013Q4

REPORT INFORMATION
  Report Type: Spontaneous
  Country: US (occurrence: None)
  Receive Date: 20131015
  Receipt Date: 20131015
  Transmission Date: 20140711
  Serious: Yes (Hospitalization)
  Sender: FDA-Public Use
  Company Number: None

PATIENT
  Age: 26 Day
  Sex: Male
  Weight: 2.77 kg

DRUGS (2)
  1. ERYTHROMYCIN [Suspect]
     Indication: OPHTHALMIA NEONATORUM
     Route: 048
     Dates: start: 20130919, end: 20130926
  2. CEFTRIAXONE SHOT [Concomitant]

REACTIONS (1)
  - Pyloric stenosis [None]
